FAERS Safety Report 5243846-2 (Version None)
Quarter: 2007Q1

REPORT INFORMATION
  Report Type: 
  Country: None (occurrence: None)
  Receive Date: 20070222
  Receipt Date: 20070208
  Transmission Date: 20070707
  Serious: Yes (Hospitalization)
  Sender: FDA-Public Use
  Company Number: PK-ELI_LILLY_AND_COMPANY-PK200702001768

PATIENT
  Age: 56 Year
  Sex: Female

DRUGS (8)
  1. FORTEO [Suspect]
     Indication: OSTEOPOROSIS
     Dosage: 20 UG, DAILY (1/D)
     Route: 058
  2. BLOKIUM-DIU [Concomitant]
     Indication: HYPERTENSION
     Dosage: 50 MG, 2/D
     Route: 002
     Dates: start: 19850101
  3. BLOKIUM [Concomitant]
     Indication: HYPERTENSION
     Dosage: 100 MG, DAILY (1/D)
     Route: 002
     Dates: start: 20070101
  4. LOSARTAN POTASSIUM [Concomitant]
     Indication: HYPERTENSION
     Dosage: 50 MG, DAILY (1/D)
     Route: 002
     Dates: start: 19850101
  5. MOTIVAL [Concomitant]
     Indication: ANXIETY
     Dosage: UNK UNK, DAILY (1/D)
     Route: 002
     Dates: start: 19850101
  6. MEBEVERINE [Concomitant]
     Indication: GASTRIC DISORDER
     Dosage: UNK UNK, DAILY (1/D)
     Route: 002
     Dates: start: 19850101
  7. ULSANIC [Concomitant]
     Indication: ANTACID THERAPY
     Dosage: 500 MG, 2/D
     Route: 002
     Dates: start: 20020101
  8. EVISTA [Suspect]
     Indication: OSTEOPOROSIS
     Dosage: 60 MG, DAILY (1/D)

REACTIONS (2)
  - ANAL FISSURE [None]
  - DRUG INEFFECTIVE [None]
